FAERS Safety Report 4969315-2 (Version None)
Quarter: 2006Q2

REPORT INFORMATION
  Report Type: 
  Country: None (occurrence: None)
  Receive Date: 20060411
  Receipt Date: 20060329
  Transmission Date: 20061013
  Serious: Yes (Life-Threatening, Hospitalization, Disabling)
  Sender: FDA-Public Use
  Company Number: GB-BRISTOL-MYERS SQUIBB COMPANY-13330345

PATIENT
  Age: 47 Year
  Sex: Female
  Weight: 75 kg

DRUGS (9)
  1. TAXOL [Suspect]
     Indication: OVARIAN CANCER
     Route: 042
     Dates: start: 20060123, end: 20060306
  2. HUMAN MIXTARD [Concomitant]
     Route: 058
  3. OXYNORM [Concomitant]
     Route: 048
  4. DEXAMETHASONE [Concomitant]
     Route: 048
     Dates: end: 20060216
  5. DICLOFENAC [Concomitant]
     Route: 048
  6. CIPROFLOXACIN HCL [Concomitant]
     Indication: NEUTROPENIA
     Route: 048
  7. AMITRIPTYLINE HCL [Concomitant]
     Route: 048
  8. KETAMINE HCL [Concomitant]
     Route: 048
     Dates: start: 20060228
  9. METOCLOPRAMIDE [Concomitant]
     Indication: NAUSEA
     Route: 048

REACTIONS (3)
  - NAUSEA [None]
  - NEUTROPENIA [None]
  - PERIPHERAL ISCHAEMIA [None]
